FAERS Safety Report 4932744-7 (Version None)
Quarter: 2006Q1

REPORT INFORMATION
  Report Type: 
  Country: None (occurrence: None)
  Receive Date: 20060301
  Receipt Date: 20060301
  Transmission Date: 20060701
  Serious: Yes (Hospitalization)
  Sender: FDA-Public Use
  Company Number: None

PATIENT
  Age: 63 Year
  Sex: Male
  Weight: 104.7809 kg

DRUGS (3)
  1. TAXOTERE [Suspect]
     Indication: NEPHROSTOMY TUBE PLACEMENT
     Dosage: 171.75MG/Q3 WEEK/IV
     Route: 042
     Dates: start: 20050509
  2. GLEEVEC [Suspect]
     Indication: NEPHROSTOMY TUBE PLACEMENT
     Dosage: 400MG/QD FOR 6 DAYS/PO
     Route: 048
     Dates: start: 20050505, end: 20050509
  3. TYLENOL (CAPLET) [Concomitant]

REACTIONS (5)
  - ACTIVATED PARTIAL THROMBOPLASTIN TIME PROLONGED [None]
  - BLOOD PHOSPHORUS DECREASED [None]
  - BLOOD POTASSIUM DECREASED [None]
  - HYDRONEPHROSIS [None]
  - NEPHROSTOMY TUBE PLACEMENT [None]
